FAERS Safety Report 9010126 (Version 1)
Quarter: 2013Q1

REPORT INFORMATION
  Report Type: Spontaneous
  Country: IN (occurrence: IN)
  Receive Date: 20130110
  Receipt Date: 20130110
  Transmission Date: 20140127
  Serious: Yes (Other)
  Sender: FDA-Public Use
  Company Number: IN-JNJFOC-20130103851

PATIENT
  Age: 27 Year
  Sex: Male

DRUGS (7)
  1. HALOPERIDOL [Suspect]
     Indication: AGITATION
     Route: 030
  2. HALOPERIDOL [Suspect]
     Indication: AGITATION
     Route: 048
  3. PROMETHAZINE [Suspect]
     Indication: AGITATION
     Route: 065
  4. CARBAMAZEPINE [Interacting]
     Indication: AGITATION
     Route: 065
  5. CARBAMAZEPINE [Interacting]
     Indication: AGITATION
     Route: 065
  6. CARBAMAZEPINE [Interacting]
     Indication: AGITATION
     Route: 065
  7. CARBAMAZEPINE [Interacting]
     Indication: AGITATION
     Route: 065

REACTIONS (3)
  - Drug interaction [Recovering/Resolving]
  - Stevens-Johnson syndrome [Recovering/Resolving]
  - Toxic epidermal necrolysis [Recovering/Resolving]
